FAERS Safety Report 11112578 (Version 1)
Quarter: 2015Q2

REPORT INFORMATION
  Report Type: Spontaneous
  Country: US (occurrence: US)
  Receive Date: 20150514
  Receipt Date: 20150514
  Transmission Date: 20150821
  Serious: No
  Sender: FDA-Public Use
  Company Number: US-BAYER-2015-228079

PATIENT
  Age: 53 Year
  Sex: Female
  Weight: 136.5 kg

DRUGS (1)
  1. OXYTROL FOR WOMEN [Suspect]
     Active Substance: OXYBUTYNIN
     Indication: HYPERTONIC BLADDER
     Dosage: 1 UNIT , ONCE EVERY 4 DAYS
     Route: 061
     Dates: start: 20150427

REACTIONS (2)
  - Expired product administered [Unknown]
  - Product adhesion issue [None]

NARRATIVE: CASE EVENT DATE: 201505
